FAERS Safety Report 5025411-5 (Version None)
Quarter: 2006Q2

REPORT INFORMATION
  Report Type: 
  Country: None (occurrence: None)
  Receive Date: 20060608
  Receipt Date: 20060524
  Transmission Date: 20061013
  Serious: Yes (Death)
  Sender: FDA-Public Use
  Company Number: 2006S1004752

PATIENT
  Age: 52 Year
  Sex: Male

DRUGS (14)
  1. CLOZAPINE [Suspect]
     Indication: SCHIZOPHRENIA
     Dosage: 300 MG;HS;ORAL
     Route: 048
     Dates: start: 20020216, end: 20060415
  2. OXYBUTYNIN HYDROCHLORIDE [Concomitant]
  3. .. [Concomitant]
  4. DILTIAZEM HYDROCHLORIDE [Concomitant]
  5. CLONAZEPAM [Concomitant]
  6. PANTOPRAZOLE SODIUM [Concomitant]
  7. VALPROATE SODIUM [Concomitant]
  8. BENZTROPINE MESYLATE [Concomitant]
  9. MONTELUKAST SODIUM [Concomitant]
  10. ACETYLSALICYLIC ACID SRT [Concomitant]
  11. FLUTICASONE PROPIONATE [Concomitant]
  12. SALBUTAMOL [Concomitant]
  13. IRON [Concomitant]
  14. ERGOCALCIFEROL/ASCORBIC ACID/FOLIC ACID/THIAMINE HYDROCHLORIDE/RETINOL [Concomitant]

REACTIONS (1)
  - DEATH [None]
